FAERS Safety Report 6644644-5 (Version None)
Quarter: 2010Q1

REPORT INFORMATION
  Report Type: 
  Country: None (occurrence: None)
  Receive Date: 20100322
  Receipt Date: 20100315
  Transmission Date: 20100710
  Serious: Yes (Hospitalization)
  Sender: FDA-Public Use
  Company Number: JP-MERCK-1003USA02546

PATIENT
  Age: 78 Year
  Sex: Female

DRUGS (1)
  1. PRIMAXIN [Suspect]
     Indication: INFECTION
     Route: 041
     Dates: start: 20100307, end: 20100312

REACTIONS (2)
  - CONVULSION [None]
  - HYPERNATRAEMIA [None]
